FAERS Safety Report 4971549-8 (Version None)
Quarter: 2006Q2

REPORT INFORMATION
  Report Type: 
  Country: None (occurrence: None)
  Receive Date: 20060406
  Receipt Date: 20060324
  Transmission Date: 20061013
  Serious: Yes (Hospitalization)
  Sender: FDA-Public Use
  Company Number: BR200603006353

PATIENT
  Age: 59 Year
  Sex: Female
  Weight: 64 kg

DRUGS (4)
  1. EVISTA [Suspect]
     Indication: OSTEOPOROSIS
     Dosage: 60 MG, DAILY (1/D); ORAL
     Route: 048
     Dates: start: 20030324
  2. METYLDOPA [Concomitant]
  3. AMLODIPINE BESYLATE [Concomitant]
  4. DORFLEX (CAFFEINE, METAMIZOLE, ORPHENADRINE CITRATE) [Concomitant]

REACTIONS (5)
  - DYSPNOEA [None]
  - EPIGLOTTIC OEDEMA [None]
  - OEDEMA [None]
  - OEDEMA MOUTH [None]
  - RASH ERYTHEMATOUS [None]
